FAERS Safety Report 4280494-5 (Version None)
Quarter: 2004Q1

REPORT INFORMATION
  Report Type: 
  Country: None (occurrence: None)
  Receive Date: 20040128
  Receipt Date: 20040128
  Transmission Date: 20041129
  Serious: Yes (Hospitalization)
  Sender: FDA-Public Use
  Company Number: None

PATIENT
  Sex: Male
  Weight: 98.4306 kg

DRUGS (2)
  1. CLINDAMYCIN 900MG/VIAL [Suspect]
     Indication: UROSEPSIS
     Dosage: CLINDAMYCIN 900MGQ8H INTRAVENOUS
     Route: 042
     Dates: start: 20031120, end: 20031125
  2. CIPROFLOXACIN [Suspect]
     Indication: PNEUMONIA ASPIRATION
     Dosage: CIPROFLOXACI 400MG Q12H INTRAVENOUS
     Route: 042
     Dates: start: 20031125, end: 20031125

REACTIONS (4)
  - ASPIRATION [None]
  - STAPHYLOCOCCAL INFECTION [None]
  - STEVENS-JOHNSON SYNDROME [None]
  - TOXIC EPIDERMAL NECROLYSIS [None]
